FAERS Safety Report 20654536 (Version 1)
Quarter: 2022Q1

REPORT INFORMATION
  Report Type: Spontaneous
  Country: AU (occurrence: AU)
  Receive Date: 20220330
  Receipt Date: 20220330
  Transmission Date: 20220423
  Serious: Yes (Other)
  Sender: FDA-Public Use
  Company Number: AU-JAZZ-2022-AU-009053

PATIENT
  Age: 17 Year
  Sex: Female

DRUGS (1)
  1. ASPARAGINASE [Suspect]
     Active Substance: ASPARAGINASE
     Indication: Lymphocytic leukaemia

REACTIONS (2)
  - Hyperlipidaemia [Unknown]
  - Type 2 diabetes mellitus [Unknown]
